FAERS Safety Report 19879061 (Version 5)
Quarter: 2025Q3

REPORT INFORMATION
  Report Type: Spontaneous
  Country: EU (occurrence: EU)
  Receive Date: 20210923
  Receipt Date: 20250903
  Transmission Date: 20251021
  Serious: Yes (Other)
  Sender: AVERITAS
  Company Number: EU-AVERITAS PHARMA, INC.-2021-269899

PATIENT
  Age: 59 Year
  Sex: Female

DRUGS (1)
  1. QUTENZA [Suspect]
     Active Substance: CAPSAICIN
     Indication: Neuralgia
     Route: 003
     Dates: start: 20210125, end: 20210125

REACTIONS (9)
  - Pain [Not Recovered/Not Resolved]
  - Condition aggravated [Not Recovered/Not Resolved]
  - Balance disorder [Not Recovered/Not Resolved]
  - Walking disability [Not Recovered/Not Resolved]
  - Incorrect product administration duration [Unknown]
  - Sensory disturbance [Unknown]
  - Off label use [Unknown]
  - Paraesthesia [Unknown]
  - Impaired quality of life [Unknown]

NARRATIVE: CASE EVENT DATE: 20210125
